FAERS Safety Report 18532911 (Version 1)
Quarter: 2020Q4

REPORT INFORMATION
  Report Type: Spontaneous
  Country: DE (occurrence: DE)
  Receive Date: 20201123
  Receipt Date: 20201123
  Transmission Date: 20210114
  Serious: Yes (Hospitalization, Other)
  Sender: FDA-Public Use
  Company Number: DE-ACCORD-208852

PATIENT
  Age: 1 Day
  Sex: Female
  Weight: 4.1 kg

DRUGS (1)
  1. SERTRALINE [Suspect]
     Active Substance: SERTRALINE HYDROCHLORIDE
     Indication: DEPRESSION
     Dosage: 200 MG/D
     Route: 064
     Dates: start: 20191120, end: 20200818

REACTIONS (6)
  - Tremor neonatal [Recovered/Resolved]
  - Large for dates baby [Recovered/Resolved]
  - Foetal exposure during pregnancy [Unknown]
  - Neonatal hypoxia [Recovered/Resolved]
  - Respiratory disorder neonatal [Recovered/Resolved]
  - Neonatal seizure [Recovering/Resolving]

NARRATIVE: CASE EVENT DATE: 20200818
